FAERS Safety Report 4901254-5 (Version None)
Quarter: 2006Q1

REPORT INFORMATION
  Report Type: 
  Country: None (occurrence: None)
  Receive Date: 20060206
  Receipt Date: 20060127
  Transmission Date: 20060701
  Serious: Yes (Other)
  Sender: FDA-Public Use
  Company Number: US-BRISTOL-MYERS SQUIBB COMPANY-13264494

PATIENT
  Age: 74 Year
  Sex: Female

DRUGS (10)
  1. ESTRACE [Suspect]
     Indication: MENOPAUSAL SYMPTOMS
  2. OGEN [Suspect]
     Indication: MENOPAUSAL SYMPTOMS
  3. ESTRADIOL [Suspect]
     Indication: MENOPAUSAL SYMPTOMS
  4. CYCRIN [Suspect]
     Indication: MENOPAUSAL SYMPTOMS
  5. PREMPRO [Suspect]
     Indication: MENOPAUSAL SYMPTOMS
  6. ESTRADERM [Suspect]
     Indication: MENOPAUSAL SYMPTOMS
  7. ESTRATEST [Suspect]
     Indication: MENOPAUSAL SYMPTOMS
  8. PROVERA [Suspect]
     Indication: MENOPAUSAL SYMPTOMS
  9. PREMARIN [Suspect]
     Indication: MENOPAUSAL SYMPTOMS
  10. ESTRATAB [Suspect]
     Indication: MENOPAUSAL SYMPTOMS

REACTIONS (1)
  - BREAST CANCER [None]
